FAERS Safety Report 12133625 (Version 1)
Quarter: 2016Q1

REPORT INFORMATION
  Report Type: Report from Study
  Country: US (occurrence: US)
  Receive Date: 20160301
  Receipt Date: 20160301
  Transmission Date: 20160526
  Serious: Yes (Hospitalization, Other)
  Sender: FDA-Public Use
  Company Number: US-BAYER-2016-021845

PATIENT
  Age: 59 Year
  Sex: Male

DRUGS (8)
  1. STIVARGA [Suspect]
     Active Substance: REGORAFENIB
     Indication: COLON CANCER
     Dosage: 160 MG, QD
     Route: 048
     Dates: start: 201311
  2. OXYCODONE HYDROCHLORIDE EXTENDED RELEASE [Concomitant]
  3. GABAPENTIN. [Concomitant]
     Active Substance: GABAPENTIN
  4. STIVARGA [Suspect]
     Active Substance: REGORAFENIB
     Indication: COLON CANCER
     Dosage: 160 MG, QD FIRST 21 DAYS OF 28 DAY CYCLE WITH FOOD (LOW FAT BREAKFAST)
     Route: 048
     Dates: start: 20160129
  5. POTASSIUM CHLORIDE. [Concomitant]
     Active Substance: POTASSIUM CHLORIDE
  6. HYDROCHLOROTHIAZIDE. [Concomitant]
     Active Substance: HYDROCHLOROTHIAZIDE
  7. PROCHLORPERAZINE MALEATE. [Concomitant]
     Active Substance: PROCHLORPERAZINE MALEATE
  8. WARFARIN SODIUM. [Concomitant]
     Active Substance: WARFARIN SODIUM

REACTIONS (9)
  - Pain [None]
  - Drug intolerance [None]
  - Fatigue [Recovering/Resolving]
  - Balance disorder [None]
  - Asthenia [Recovered/Resolved]
  - International normalised ratio increased [None]
  - Dysphonia [Recovered/Resolved]
  - Pain in extremity [None]
  - Vomiting [Recovered/Resolved]

NARRATIVE: CASE EVENT DATE: 20160130
